FAERS Safety Report 24914339 (Version 1)
Quarter: 2025Q1

REPORT INFORMATION
  Report Type: Spontaneous
  Country: CN (occurrence: CN)
  Receive Date: 20250203
  Receipt Date: 20250203
  Transmission Date: 20250409
  Serious: Yes (Death, Hospitalization)
  Sender: STRIDES
  Company Number: CN-STRIDES ARCOLAB LIMITED-2025SP001477

PATIENT
  Age: 50 Year
  Sex: Female

DRUGS (1)
  1. METHOTREXATE [Suspect]
     Active Substance: METHOTREXATE
     Indication: Rheumatoid arthritis
     Route: 048

REACTIONS (10)
  - Haemorrhage intracranial [Fatal]
  - Epidermolysis bullosa [Unknown]
  - Altered state of consciousness [Unknown]
  - Mouth ulceration [Unknown]
  - Pyrexia [Unknown]
  - Pancytopenia [Unknown]
  - Hepatotoxicity [Unknown]
  - Thrombocytopenia [Fatal]
  - Toxicity to various agents [Fatal]
  - Infection [Unknown]
